FAERS Safety Report 22657368 (Version 1)
Quarter: 2023Q2

REPORT INFORMATION
  Report Type: Spontaneous
  Country: US (occurrence: US)
  Receive Date: 20230630
  Receipt Date: 20230630
  Transmission Date: 20230722
  Serious: No
  Sender: FDA-Public Use
  Company Number: US-LEO Pharma-360187

PATIENT
  Sex: Female

DRUGS (1)
  1. ADBRY [Suspect]
     Active Substance: TRALOKINUMAB-LDRM
     Indication: Dermatitis atopic
     Dosage: ADMINISTERED SUBCUTANEOUSLY AND REPORTED AS ONGOING
     Dates: start: 202305

REACTIONS (3)
  - Dyspnoea [Unknown]
  - Blood pressure increased [Unknown]
  - Injection site pain [Unknown]
